FAERS Safety Report 7578684-9 (Version None)
Quarter: 2011Q2

REPORT INFORMATION
  Report Type: 
  Country: None (occurrence: None)
  Receive Date: 20110628
  Receipt Date: 20080805
  Transmission Date: 20111010
  Serious: Yes (Disabling, Other)
  Sender: FDA-Public Use
  Company Number: US-BAYER-200828828NA

PATIENT
  Age: 25 Year
  Sex: Female
  Weight: 59.8 kg

DRUGS (20)
  1. ANTIHYPERTENSIVES [Concomitant]
  2. MAGNEVIST [Suspect]
     Indication: NUCLEAR MAGNETIC RESONANCE IMAGING
     Dosage: 13 ML, ONCE
     Dates: start: 20040220, end: 20040220
  3. CLOBETASOL PROPIONATE [Concomitant]
  4. OPTIMARK [Suspect]
     Indication: NUCLEAR MAGNETIC RESONANCE IMAGING
  5. PROGRAF [Concomitant]
  6. VITAMIN D [Concomitant]
  7. VICODIN [Concomitant]
  8. PHOSLO [Concomitant]
  9. PROHANCE [Suspect]
     Indication: NUCLEAR MAGNETIC RESONANCE IMAGING
  10. EPOGEN [Concomitant]
  11. TOPROL-XL [Concomitant]
  12. MAGNEVIST [Suspect]
     Dosage: 20 ML, ONCE
     Dates: start: 20051027, end: 20051027
  13. MULTIHANCE [Suspect]
     Indication: NUCLEAR MAGNETIC RESONANCE IMAGING
  14. CELLCEPT [Concomitant]
  15. NORVASC [Concomitant]
  16. LISINOPRIL [Concomitant]
  17. ANTIBIOTICS [Concomitant]
  18. RENAGEL [Concomitant]
  19. OMNISCAN [Suspect]
     Indication: NUCLEAR MAGNETIC RESONANCE IMAGING
  20. VITAMIN E [Concomitant]

REACTIONS (22)
  - PAIN [None]
  - BLOOD PRESSURE INCREASED [None]
  - SKIN HYPERTROPHY [None]
  - ABASIA [None]
  - INJURY [None]
  - OEDEMA PERIPHERAL [None]
  - MUSCULAR WEAKNESS [None]
  - ANXIETY [None]
  - EMOTIONAL DISTRESS [None]
  - PALPABLE PURPURA [None]
  - SKIN TIGHTNESS [None]
  - DRY SKIN [None]
  - JOINT STIFFNESS [None]
  - SKIN INDURATION [None]
  - NEPHROGENIC SYSTEMIC FIBROSIS [None]
  - PRURITUS [None]
  - SCAR [None]
  - SKIN LESION [None]
  - MOBILITY DECREASED [None]
  - SKIN DISCOLOURATION [None]
  - JOINT RANGE OF MOTION DECREASED [None]
  - ANHEDONIA [None]
